FAERS Safety Report 6004320-9 (Version None)
Quarter: 2008Q4

REPORT INFORMATION
  Report Type: 
  Country: None (occurrence: None)
  Receive Date: 20081216
  Receipt Date: 20081208
  Transmission Date: 20090506
  Serious: Yes (Life-Threatening, Other)
  Sender: FDA-Public Use
  Company Number: JP-ABBOTT-08P-087-0489712-00

PATIENT
  Sex: Male
  Weight: 62 kg

DRUGS (13)
  1. SEVOFLURANE [Suspect]
     Indication: ANAESTHESIA PROCEDURE
     Route: 055
     Dates: start: 20080312, end: 20080312
  2. REMIFENTANIL HYDROCHLORIDE [Suspect]
     Indication: ANALGESIA
     Route: 042
     Dates: start: 20080312, end: 20080312
  3. NITRAZEPAM [Suspect]
     Indication: GENERAL ANAESTHESIA
     Route: 042
     Dates: start: 20080312, end: 20080312
  4. DROPERIDOL [Suspect]
     Indication: PREMEDICATION
     Route: 042
     Dates: start: 20080312, end: 20080312
  5. FENTANYL CITRATE [Concomitant]
     Indication: ANALGESIA
     Route: 042
     Dates: start: 20080312, end: 20080312
  6. NITROUS OXIDE [Concomitant]
     Indication: GENERAL ANAESTHESIA
     Route: 055
     Dates: start: 20080312, end: 20080312
  7. VECURONIUM BROMIDE [Concomitant]
     Indication: GENERAL ANAESTHESIA
     Route: 042
     Dates: start: 20080312, end: 20080312
  8. EPHEDRINE HYDROCHLORIDE [Concomitant]
     Indication: BLOOD PRESSURE INCREASED
     Route: 042
     Dates: start: 20080312, end: 20080312
  9. METHOXAMINE HYDROCHLORIDE [Concomitant]
     Indication: BLOOD PRESSURE INCREASED
     Route: 042
     Dates: start: 20080312, end: 20080312
  10. EPOETIN BETA [Concomitant]
     Indication: LIVER DISORDER
     Route: 042
     Dates: start: 20080312, end: 20080312
  11. MEPIVACAINE HCL [Concomitant]
     Indication: ANALGESIA
     Route: 008
     Dates: start: 20080312, end: 20080312
  12. ATROPINE SULFATE [Concomitant]
     Indication: PREMEDICATION
     Route: 042
     Dates: start: 20080312, end: 20080312
  13. OMEPRAZOLE [Concomitant]
     Indication: PREMEDICATION
     Route: 042
     Dates: start: 20080312, end: 20080312

REACTIONS (10)
  - ACIDOSIS [None]
  - BLOOD CREATINE PHOSPHOKINASE INCREASED [None]
  - BURNING SENSATION [None]
  - CHILLS [None]
  - HYPERCREATININAEMIA [None]
  - HYPERTHERMIA MALIGNANT [None]
  - MYOGLOBIN BLOOD INCREASED [None]
  - MYOGLOBINAEMIA [None]
  - MYOGLOBINURIA [None]
  - POST PROCEDURAL COMPLICATION [None]
